FAERS Safety Report 6327712-7 (Version None)
Quarter: 2009Q3

REPORT INFORMATION
  Report Type: 
  Country: None (occurrence: None)
  Receive Date: 20090825
  Receipt Date: 20090819
  Transmission Date: 20100115
  Serious: Yes (Life-Threatening, Disabling)
  Sender: FDA-Public Use
  Company Number: RU-ABBOTT-09P-251-0503057-00

PATIENT
  Sex: Female

DRUGS (3)
  1. DEPAKENE [Suspect]
     Indication: EPILEPSY
     Route: 048
     Dates: start: 20081201
  2. TEMPALGIN [Concomitant]
     Indication: HEADACHE
     Route: 048
  3. IBUPROFEN [Concomitant]
     Indication: HEADACHE
     Route: 048

REACTIONS (3)
  - CONVULSION [None]
  - DRUG LEVEL BELOW THERAPEUTIC [None]
  - PRODUCT COUNTERFEIT [None]
